FAERS Safety Report 7113188-9 (Version None)
Quarter: 2010Q4

REPORT INFORMATION
  Report Type: 
  Country: None (occurrence: None)
  Receive Date: 20101119
  Receipt Date: 20091019
  Transmission Date: 20110411
  Serious: No
  Sender: FDA-Public Use
  Company Number: A0812618A

PATIENT
  Age: 53 Year
  Sex: Female

DRUGS (2)
  1. BUPROPION HCL [Suspect]
     Dosage: 200MG IN THE MORNING
     Route: 048
     Dates: start: 20080101
  2. SEROQUEL [Concomitant]
     Dosage: 300MG AT NIGHT
     Route: 048
     Dates: start: 20080101

REACTIONS (6)
  - ABDOMINAL PAIN UPPER [None]
  - DRUG INEFFECTIVE [None]
  - FEELING ABNORMAL [None]
  - INSOMNIA [None]
  - IRRITABILITY [None]
  - PRODUCT QUALITY ISSUE [None]
